FAERS Safety Report 19258695 (Version 1)
Quarter: 2021Q2

REPORT INFORMATION
  Report Type: Spontaneous
  Country: US (occurrence: US)
  Receive Date: 20210514
  Receipt Date: 20210514
  Transmission Date: 20210717
  Serious: No
  Sender: FDA-Public Use
  Company Number: US-ORGANON-O2105USA000948

PATIENT
  Sex: Female

DRUGS (13)
  1. ENDOMETRIN [Concomitant]
     Active Substance: PROGESTERONE
  2. MENOPUR [Concomitant]
     Active Substance: FOLLITROPIN\LUTEINIZING HORMONE
  3. METHYLPREDNISOLONE. [Concomitant]
     Active Substance: METHYLPREDNISOLONE
  4. DOXYCYCLINE HYCLATE. [Concomitant]
     Active Substance: DOXYCYCLINE HYCLATE
  5. FOLLISTIM AQ [Suspect]
     Active Substance: FOLLITROPIN
     Indication: INFERTILITY FEMALE
     Dosage: 200 UNITS, QDX10D
     Route: 058
     Dates: start: 20210323
  6. NORETHIN [Concomitant]
  7. METRONIDAZOLE. [Concomitant]
     Active Substance: METRONIDAZOLE
  8. PROGESTERONE. [Concomitant]
     Active Substance: PROGESTERONE
  9. BUPROPION HCL [Concomitant]
     Active Substance: BUPROPION HYDROCHLORIDE
  10. ESTRADIOL. [Concomitant]
     Active Substance: ESTRADIOL
  11. HCG [Concomitant]
     Active Substance: GONADOTROPHIN, CHORIONIC
  12. GANIRELIX ACETATE INJECTION [Concomitant]
     Active Substance: GANIRELIX ACETATE
  13. LEUPROLIDE [LEUPRORELIN] [Concomitant]
     Active Substance: LEUPROLIDE ACETATE

REACTIONS (1)
  - Fatigue [Unknown]
